FAERS Safety Report 26075224 (Version 2)
Quarter: 2025Q4

REPORT INFORMATION
  Report Type: Spontaneous
  Country: CA (occurrence: CA)
  Receive Date: 20251121
  Receipt Date: 20251202
  Transmission Date: 20260118
  Serious: No
  Sender: PFIZER
  Company Number: CA-PFIZER INC-202500224003

PATIENT
  Age: 76 Year
  Sex: Female

DRUGS (1)
  1. PREMARIN [Suspect]
     Active Substance: ESTROGENS, CONJUGATED
     Dosage: 0.625 MG

REACTIONS (4)
  - Reaction to excipient [Unknown]
  - Application site irritation [Unknown]
  - Application site pruritus [Unknown]
  - Application site pain [Unknown]

NARRATIVE: CASE EVENT DATE: 20251113
